FAERS Safety Report 11755230 (Version 1)
Quarter: 2015Q4

REPORT INFORMATION
  Report Type: Spontaneous
  Country: US (occurrence: None)
  Receive Date: 20151119
  Receipt Date: 20151119
  Transmission Date: 20160304
  Serious: Yes (Other)
  Sender: FDA-Public Use
  Company Number: ADR-2015-01479

PATIENT
  Age: 24 Year
  Sex: Female

DRUGS (1)
  1. BACLOFEN INTRATHECAL 2000 MCG/ML [Suspect]
     Active Substance: BACLOFEN
     Indication: MUSCLE SPASTICITY
     Dosage: 1515 MCG/DAY

REACTIONS (6)
  - Muscle spasticity [None]
  - Cerebrospinal fluid leakage [None]
  - Post lumbar puncture syndrome [None]
  - Medical device site erythema [None]
  - Medical device site warmth [None]
  - Medical device site infection [None]
